FAERS Safety Report 13167355 (Version 1)
Quarter: 2017Q1

REPORT INFORMATION
  Report Type: Spontaneous
  Country: US (occurrence: US)
  Receive Date: 20170130
  Receipt Date: 20170130
  Transmission Date: 20170428
  Serious: Yes (Life-Threatening, Hospitalization, Disabling)
  Sender: FDA-Public Use
  Company Number: None

PATIENT
  Age: 38 Year
  Sex: Female
  Weight: 78.4 kg

DRUGS (5)
  1. HEPARIN [Suspect]
     Active Substance: HEPARIN SODIUM
     Indication: ATRIAL FIBRILLATION
     Dosage: ?          OTHER FREQUENCY:CONTINUOUS;?
     Route: 041
     Dates: start: 20161229, end: 20161230
  2. TORADOL (KETOROLAC) [Concomitant]
  3. HEPARIN [Suspect]
     Active Substance: HEPARIN SODIUM
     Indication: MITRAL VALVE DISEASE
     Dosage: ?          OTHER FREQUENCY:CONTINUOUS;?
     Route: 041
     Dates: start: 20161229, end: 20161230
  4. WARFARIN [Concomitant]
     Active Substance: WARFARIN
  5. EPIDURAL [Concomitant]

REACTIONS (12)
  - Back pain [None]
  - Paraplegia [None]
  - Neurogenic bowel [None]
  - Haemoglobin decreased [None]
  - Hypotension [None]
  - Hypoaesthesia [None]
  - Drug level increased [None]
  - Haematocrit decreased [None]
  - Movement disorder [None]
  - Haematoma [None]
  - Incision site haemorrhage [None]
  - Neurogenic bladder [None]

NARRATIVE: CASE EVENT DATE: 20161229
